FAERS Safety Report 9248485 (Version 1)
Quarter: 2013Q1

REPORT INFORMATION
  Report Type: Spontaneous
  Country: US (occurrence: None)
  Receive Date: 20130305
  Receipt Date: 20130305
  Transmission Date: 20140127
  Serious: Yes (Other)
  Sender: FDA-Public Use
  Company Number: 163-21880-12092231

PATIENT
  Age: 79 Year
  Sex: Male

DRUGS (15)
  1. REVLIMID [Suspect]
     Indication: PLASMA CELL MYELOMA
     Dosage: 10 MG, 1 IN 1 D, PO
     Route: 048
     Dates: start: 201106
  2. ECHINACEA (HERBAL PREPARATION) [Concomitant]
  3. CITALOPRAM (CITALOPRAM) [Concomitant]
  4. ASTRAGALUS (HERBAL PREPARATION) [Concomitant]
  5. VITAMIN C [Concomitant]
  6. MAGNESIUM (MAGNESIUM) [Concomitant]
  7. FISH OIL (FISH OIL) [Concomitant]
  8. LAXATIVE (SENNOSIDE A+B) (SENNOSIDE A+B) [Concomitant]
  9. VITAMIN D3 (COLECALCIFEROL) [Concomitant]
  10. AMLODIPINE (AMLODIPINE) [Concomitant]
  11. VITAMIN B12 (CYANOCOBALAMIN) [Concomitant]
  12. ASPIRIN (ACETYLSALICYLIC ACID) [Concomitant]
  13. LIPITOR (ATORVASTATIN) [Concomitant]
  14. VALACYCLOVIR (VALACICLOVIR HYDROCHLORIDE) [Concomitant]
  15. OXYCONTIN (OXYCODONE HYDROCHLORIDE) [Concomitant]

REACTIONS (1)
  - White blood cell count decreased [None]
